FAERS Safety Report 6306984-9 (Version None)
Quarter: 2009Q3

REPORT INFORMATION
  Report Type: 
  Country: None (occurrence: None)
  Receive Date: 20090812
  Receipt Date: 20090804
  Transmission Date: 20100115
  Serious: Yes (Other)
  Sender: FDA-Public Use
  Company Number: FR-SANOFI-SYNTHELABO-A02200902053

PATIENT
  Age: 54 Year
  Sex: Female

DRUGS (1)
  1. PLAQUENIL [Suspect]
     Indication: SYSTEMIC LUPUS ERYTHEMATOSUS
     Route: 048
     Dates: start: 20090323, end: 20090330

REACTIONS (3)
  - BLISTER [None]
  - RASH [None]
  - VASCULITIS [None]
